FAERS Safety Report 6929685-2 (Version None)
Quarter: 2010Q3

REPORT INFORMATION
  Report Type: 
  Country: None (occurrence: None)
  Receive Date: 20100813
  Receipt Date: 20100729
  Transmission Date: 20110219
  Serious: Yes (Other)
  Sender: FDA-Public Use
  Company Number: 2010SP002186

PATIENT
  Age: 54 Year
  Sex: Female
  Weight: 62 kg

DRUGS (6)
  1. OMNARIS [Suspect]
     Indication: RHINITIS ALLERGIC
     Dosage: 200 UG; QD; NASAL
     Route: 045
     Dates: start: 20100726, end: 20100726
  2. CENTRUM [Concomitant]
  3. CALCIUM [Concomitant]
  4. FERROUS SULFATE [Concomitant]
  5. FLUOXETINE [Concomitant]
  6. LORAX [Concomitant]

REACTIONS (5)
  - DIZZINESS [None]
  - HYPERTENSIVE CRISIS [None]
  - HYPOAESTHESIA [None]
  - SYNCOPE [None]
  - VISUAL IMPAIRMENT [None]
